FAERS Safety Report 5636705-4 (Version None)
Quarter: 2008Q1

REPORT INFORMATION
  Report Type: 
  Country: None (occurrence: None)
  Receive Date: 20080219
  Receipt Date: 20080219
  Transmission Date: 20080703
  Serious: Yes (Life-Threatening, Hospitalization)
  Sender: FDA-Public Use
  Company Number: None

PATIENT
  Age: 79 Year
  Sex: Female

DRUGS (8)
  1. WARFARIN SODIUM [Suspect]
     Dosage: DAILY PO
     Route: 048
  2. ASPIRIN [Suspect]
     Dosage: 81 MG DAILY PO
     Route: 048
  3. LIPITOR [Concomitant]
  4. DITROPAN [Concomitant]
  5. COREG [Concomitant]
  6. ARICEPT [Concomitant]
  7. FOSAMAX [Concomitant]
  8. M.V.I. [Concomitant]

REACTIONS (6)
  - DYSARTHRIA [None]
  - FALL [None]
  - INTERNATIONAL NORMALISED RATIO INCREASED [None]
  - MUSCULAR WEAKNESS [None]
  - SUBARACHNOID HAEMORRHAGE [None]
  - SUBDURAL HAEMATOMA [None]
